FAERS Safety Report 8831377 (Version 2)
Quarter: 2012Q4

REPORT INFORMATION
  Report Type: 
  Country: US (occurrence: US)
  Receive Date: 20121008
  Receipt Date: 20121210
  Transmission Date: 20130627
  Serious: Yes (Death)
  Sender: FDA-Public Use
  Company Number: US-GILEAD-2012-0062383

PATIENT
  Sex: Male

DRUGS (4)
  1. LETAIRIS [Suspect]
     Indication: PULMONARY HYPERTENSION
     Dosage: 10 mg, QD
     Route: 048
     Dates: start: 201207, end: 20120928
  2. LETAIRIS [Suspect]
     Indication: SCLERODERMA
  3. LASIX                              /00032601/ [Concomitant]
  4. ADCIRCA [Concomitant]

REACTIONS (3)
  - Cardiac arrest [Fatal]
  - Hypoxia [Fatal]
  - Respiratory failure [Fatal]
